FAERS Safety Report 23932195 (Version 1)
Quarter: 2024Q2

REPORT INFORMATION
  Report Type: Spontaneous
  Country: IT (occurrence: IT)
  Receive Date: 20240603
  Receipt Date: 20240603
  Transmission Date: 20240716
  Serious: Yes (Hospitalization)
  Sender: FDA-Public Use
  Company Number: None

PATIENT
  Age: 86 Year
  Sex: Female

DRUGS (6)
  1. LORAZEPAM [Suspect]
     Active Substance: LORAZEPAM
     Indication: Substance abuse
     Dosage: TIME INTERVAL: TOTAL: LORAZEPAM 2.5 MG: 7 TABLETS
     Route: 048
     Dates: start: 20240116, end: 20240116
  2. MIRTAZAPINE [Suspect]
     Active Substance: MIRTAZAPINE
     Indication: Substance abuse
     Dosage: TIME INTERVAL: TOTAL: MIRTAZAPINE 30 MG: 7 TABLETS., MIRTAZAPINA
     Route: 048
     Dates: start: 20240116, end: 20240116
  3. AMLODIPINE\INDAPAMIDE\PERINDOPRIL [Suspect]
     Active Substance: AMLODIPINE\INDAPAMIDE\PERINDOPRIL
     Indication: Substance abuse
     Dosage: TIME INTERVAL: TOTAL: TRIPLIAM 5/1.25/5 MG: 7 TABLETS
     Route: 048
     Dates: start: 20240116, end: 20240116
  4. DULOXETINE [Suspect]
     Active Substance: DULOXETINE
     Indication: Substance abuse
     Dosage: TIME INTERVAL: TOTAL: : 7 TABLETS,DULOXETINA
     Route: 048
     Dates: start: 20240116, end: 20240116
  5. ASPIRIN [Suspect]
     Active Substance: ASPIRIN
     Indication: Substance abuse
     Dosage: TIME INTERVAL: TOTAL: ASA  7 TABLETS, ACIDO ACETILSALICILICO
     Route: 048
     Dates: start: 20240116, end: 20240116
  6. LEVOTHYROXINE SODIUM [Suspect]
     Active Substance: LEVOTHYROXINE SODIUM
     Indication: Substance abuse
     Dosage: TIME INTERVAL: TOTAL: EUTIROX 75 MCG: 7 TABLETS
     Route: 048
     Dates: start: 20240116, end: 20240116

REACTIONS (2)
  - Substance abuse [Unknown]
  - Psychomotor skills impaired [Unknown]

NARRATIVE: CASE EVENT DATE: 20240116
